FAERS Safety Report 6094742-2 (Version None)
Quarter: 2009Q1

REPORT INFORMATION
  Report Type: 
  Country: None (occurrence: None)
  Receive Date: 20090225
  Receipt Date: 20090212
  Transmission Date: 20090719
  Serious: Yes (Hospitalization)
  Sender: FDA-Public Use
  Company Number: 8034660

PATIENT
  Age: 24 Month
  Sex: Male

DRUGS (1)
  1. KEPPRA [Suspect]
     Dates: start: 20080713

REACTIONS (4)
  - HAEMOGLOBIN DECREASED [None]
  - HEPATITIS [None]
  - RASH [None]
  - WHITE BLOOD CELL COUNT INCREASED [None]
